FAERS Safety Report 7388976-4 (Version None)
Quarter: 2011Q2

REPORT INFORMATION
  Report Type: 
  Country: None (occurrence: None)
  Receive Date: 20110401
  Receipt Date: 20110328
  Transmission Date: 20111010
  Serious: Yes (Death)
  Sender: FDA-Public Use
  Company Number: FR-ASTRAZENECA-2011SE17726

PATIENT
  Sex: Female

DRUGS (5)
  1. SUFENTANIL [Suspect]
     Route: 042
     Dates: start: 20110207, end: 20110207
  2. XYLOCAINE [Suspect]
     Route: 042
     Dates: start: 20110207, end: 20110207
  3. DIPRIVAN [Suspect]
     Route: 042
     Dates: start: 20110207, end: 20110207
  4. CEFAZOLIN [Suspect]
     Route: 042
     Dates: start: 20110207, end: 20110207
  5. PATENT BLUE V [Suspect]
     Route: 023
     Dates: start: 20110207, end: 20110207

REACTIONS (1)
  - ANAPHYLACTIC SHOCK [None]
